FAERS Safety Report 23510429 (Version 1)
Quarter: 2024Q1

REPORT INFORMATION
  Report Type: Spontaneous
  Country: DE (occurrence: DE)
  Receive Date: 20240211
  Receipt Date: 20240211
  Transmission Date: 20240409
  Serious: Yes (Congenital Anomaly, Other)
  Sender: FDA-Public Use
  Company Number: DE-EMBRYOTOX-202112069

PATIENT
  Sex: Female
  Weight: 3.7 kg

DRUGS (4)
  1. STELARA [Suspect]
     Active Substance: USTEKINUMAB
     Indication: Crohn^s disease
     Dosage: 45 [MG/D (ALLE 8 WK) ]
     Route: 064
     Dates: start: 20210420, end: 20210430
  2. COMIRNATY (TOZINAMERAN) [Concomitant]
     Active Substance: TOZINAMERAN
     Indication: COVID-19 immunisation
     Route: 064
     Dates: start: 20211229, end: 20211229
  3. COMIRNATY (TOZINAMERAN) [Concomitant]
     Active Substance: TOZINAMERAN
     Indication: COVID-19 immunisation
     Route: 064
  4. COMIRNATY (TOZINAMERAN) [Concomitant]
     Active Substance: TOZINAMERAN
     Indication: COVID-19 immunisation
     Route: 064
     Dates: start: 20210728, end: 20210728

REACTIONS (4)
  - Congenital pyelocaliectasis [Unknown]
  - Foetal exposure during pregnancy [Unknown]
  - Congenital ureteropelvic junction obstruction [Unknown]
  - Congenital Horner^s syndrome [Unknown]
